FAERS Safety Report 11108870 (Version 1)
Quarter: 2015Q2

REPORT INFORMATION
  Report Type: Spontaneous
  Country: US (occurrence: None)
  Receive Date: 20150511
  Receipt Date: 20150511
  Transmission Date: 20150821
  Serious: No
  Sender: FDA-Public Use
  Company Number: None

PATIENT
  Age: 60 Year
  Sex: Male
  Weight: 113.4 kg

DRUGS (19)
  1. TRAMADOL HYDROCHLORIDE AND ACETA 37.5-325 TAB APO APOTEX CORP [Suspect]
     Active Substance: ACETAMINOPHEN\TRAMADOL
     Indication: PROCEDURAL PAIN
     Route: 048
     Dates: start: 20150429, end: 20150429
  2. HUMALOG [Concomitant]
     Active Substance: INSULIN LISPRO
  3. LISINOPRIL. [Concomitant]
     Active Substance: LISINOPRIL
  4. ALLOPURINOL. [Concomitant]
     Active Substance: ALLOPURINOL
  5. COLCRYS [Concomitant]
     Active Substance: COLCHICINE
  6. VITAMIN D3 [Concomitant]
     Active Substance: CHOLECALCIFEROL
  7. TRADJENTA [Concomitant]
     Active Substance: LINAGLIPTIN
  8. SLOW-MAG [Concomitant]
     Active Substance: MAGNESIUM CHLORIDE
  9. FUROSEMIDE. [Concomitant]
     Active Substance: FUROSEMIDE
  10. WARFARIN [Concomitant]
     Active Substance: WARFARIN
  11. LEVOTHYROXIN [Concomitant]
     Active Substance: LEVOTHYROXINE
  12. VITAMIN C [Concomitant]
     Active Substance: ASCORBIC ACID
  13. TRAMADOL HYDROCHLORIDE AND ACETA 37.5-325 TAB APO APOTEX CORP [Suspect]
     Active Substance: ACETAMINOPHEN\TRAMADOL
     Indication: BACK PAIN
     Route: 048
     Dates: start: 20150429, end: 20150429
  14. FISH OIL [Concomitant]
     Active Substance: FISH OIL
  15. CALCIUM [Concomitant]
     Active Substance: CALCIUM
  16. GLIMEPIRIDE. [Concomitant]
     Active Substance: GLIMEPIRIDE
  17. VITAMIN B [Concomitant]
     Active Substance: VITAMIN B
  18. IRON [Concomitant]
     Active Substance: IRON
  19. LANTUS [Concomitant]
     Active Substance: INSULIN GLARGINE

REACTIONS (5)
  - Heart rate increased [None]
  - Product quality issue [None]
  - Product substitution issue [None]
  - Cardiac flutter [None]
  - Blood pressure increased [None]

NARRATIVE: CASE EVENT DATE: 20150429
